FAERS Safety Report 11740670 (Version 2)
Quarter: 2015Q4

REPORT INFORMATION
  Report Type: Spontaneous
  Country: US (occurrence: US)
  Receive Date: 20151110
  Receipt Date: 20151120
  Transmission Date: 20160304
  Serious: No
  Sender: FDA-Public Use
  Company Number: US-ELI_LILLY_AND_COMPANY-US201207000270

PATIENT
  Sex: Male

DRUGS (1)
  1. FORTEO [Suspect]
     Active Substance: TERIPARATIDE
     Indication: OSTEOPOROSIS
     Dosage: UNK, QD

REACTIONS (7)
  - Malaise [Unknown]
  - Hypertension [Unknown]
  - Abdominal distension [Unknown]
  - Pain [Unknown]
  - Discomfort [Unknown]
  - Limb discomfort [Unknown]
  - Abdominal discomfort [Unknown]
